FAERS Safety Report 6134712-9 (Version None)
Quarter: 2009Q1

REPORT INFORMATION
  Report Type: 
  Country: None (occurrence: None)
  Receive Date: 20090327
  Receipt Date: 20090317
  Transmission Date: 20090719
  Serious: Yes (Other)
  Sender: FDA-Public Use
  Company Number: US-JNJFOC-20090205964

PATIENT
  Sex: Male
  Weight: 81.65 kg

DRUGS (4)
  1. REMICADE [Suspect]
     Dosage: ALSO REPORTED AS 19-JAN-2009
     Route: 042
  2. REMICADE [Suspect]
     Indication: CROHN'S DISEASE
     Route: 042
  3. OXYCODONE HCL [Concomitant]
     Indication: PAIN
  4. MULTI-VITAMIN [Concomitant]

REACTIONS (6)
  - ARTHRALGIA [None]
  - EYE PAIN [None]
  - JOINT SWELLING [None]
  - PAIN [None]
  - POLLAKIURIA [None]
  - WEIGHT INCREASED [None]
